FAERS Safety Report 8174444-9 (Version None)
Quarter: 2012Q1

REPORT INFORMATION
  Report Type: 
  Country: None (occurrence: None)
  Receive Date: 20120229
  Receipt Date: 20120216
  Transmission Date: 20120608
  Serious: Yes (Hospitalization, Other)
  Sender: FDA-Public Use
  Company Number: ES-CELGENEUS-144-21880-12021868

PATIENT
  Age: 68 Year
  Sex: Female

DRUGS (2)
  1. REVLIMID [Suspect]
     Indication: MULTIPLE MYELOMA
     Dosage: 15 MILLIGRAM
     Route: 048
  2. REVLIMID [Suspect]
     Route: 048

REACTIONS (3)
  - ACUTE RESPIRATORY FAILURE [None]
  - DERMATITIS ALLERGIC [None]
  - ALVEOLITIS ALLERGIC [None]
